FAERS Safety Report 6172173-4 (Version None)
Quarter: 2009Q2

REPORT INFORMATION
  Report Type: 
  Country: None (occurrence: None)
  Receive Date: 20090429
  Receipt Date: 20081110
  Transmission Date: 20091009
  Serious: No
  Sender: FDA-Public Use
  Company Number: A0756080A

PATIENT
  Age: 14 Month
  Sex: Female

DRUGS (1)
  1. ZOFRAN [Suspect]
     Route: 048

REACTIONS (6)
  - ANOREXIA [None]
  - ASTHENIA [None]
  - DIZZINESS [None]
  - ILL-DEFINED DISORDER [None]
  - LETHARGY [None]
  - OFF LABEL USE [None]
